FAERS Safety Report 6309729-1 (Version None)
Quarter: 2009Q3

REPORT INFORMATION
  Report Type: 
  Country: None (occurrence: None)
  Receive Date: 20090814
  Receipt Date: 20090813
  Transmission Date: 20100115
  Serious: Yes (Death, Other)
  Sender: FDA-Public Use
  Company Number: PHHY2009AT33900

PATIENT
  Age: 79 Year
  Sex: Female
  Weight: 54 kg

DRUGS (7)
  1. TEGRETOL [Suspect]
     Dosage: TWICE DAILY
  2. ACTONEL [Concomitant]
     Dosage: 35 MG, QW
  3. BERODUAL [Concomitant]
  4. NOVALGIN [Concomitant]
  5. PANTOPRAZOLE SODIUM [Concomitant]
  6. SPIRIVA [Concomitant]
  7. WOBENZYM [Concomitant]

REACTIONS (3)
  - CIRCULATORY COLLAPSE [None]
  - DEATH [None]
  - VOMITING [None]
